FAERS Safety Report 13622005 (Version 1)
Quarter: 2017Q2

REPORT INFORMATION
  Report Type: Spontaneous
  Country: US (occurrence: US)
  Receive Date: 20170607
  Receipt Date: 20170607
  Transmission Date: 20170830
  Serious: No
  Sender: FDA-Public Use
  Company Number: US-ROCHE-1877225

PATIENT
  Age: 49 Year
  Sex: Female

DRUGS (6)
  1. XELODA [Suspect]
     Active Substance: CAPECITABINE
     Indication: PRODUCT USED FOR UNKNOWN INDICATION
     Route: 065
  2. FASLODEX [Concomitant]
     Active Substance: FULVESTRANT
  3. ASPIRIN. [Concomitant]
     Active Substance: ASPIRIN
     Dosage: ADULT LOW DOSE
     Route: 065
  4. XGEVA [Concomitant]
     Active Substance: DENOSUMAB
  5. CALCIUM ACETATE. [Concomitant]
     Active Substance: CALCIUM ACETATE
  6. IBRANCE [Concomitant]
     Active Substance: PALBOCICLIB
     Indication: BREAST CANCER FEMALE
     Dosage: 21 DAYS ON AND 7 DAYS OFF
     Route: 048

REACTIONS (4)
  - Headache [Recovered/Resolved]
  - Increased tendency to bruise [Unknown]
  - Dry skin [Unknown]
  - Skin fissures [Unknown]
